FAERS Safety Report 6295473-6 (Version None)
Quarter: 2009Q3

REPORT INFORMATION
  Report Type: 
  Country: None (occurrence: None)
  Receive Date: 20090731
  Receipt Date: 20090717
  Transmission Date: 20100115
  Serious: Yes (Hospitalization)
  Sender: FDA-Public Use
  Company Number: 20090311

PATIENT
  Age: 28 Year
  Sex: Female

DRUGS (1)
  1. VENOFER [Suspect]
     Indication: ANAEMIA OF PREGNANCY
     Dosage: 300 MG X 2 DOSES INTRAVENOUS DRIP
     Route: 041
     Dates: start: 20090606, end: 20090608

REACTIONS (2)
  - INJECTION SITE THROMBOSIS [None]
  - THROMBOPHLEBITIS [None]
